FAERS Safety Report 5201253-2 (Version None)
Quarter: 2007Q1

REPORT INFORMATION
  Report Type: 
  Country: None (occurrence: None)
  Receive Date: 20070108
  Receipt Date: 20070102
  Transmission Date: 20070707
  Serious: Yes (Hospitalization)
  Sender: FDA-Public Use
  Company Number: US-ABBOTT-07P-163-0354798-00

PATIENT
  Sex: Female
  Weight: 56.75 kg

DRUGS (1)
  1. ERYTHROMYCIN BASE FILMTAB 500MG [Suspect]
     Indication: ACNE
     Route: 048
     Dates: start: 20060701, end: 20060801

REACTIONS (7)
  - DEAFNESS [None]
  - DIARRHOEA [None]
  - DYSSTASIA [None]
  - PARAESTHESIA [None]
  - PARALYSIS [None]
  - VOMITING [None]
  - WHITE BLOOD CELL COUNT INCREASED [None]
